FAERS Safety Report 4339001-0 (Version None)
Quarter: 2004Q2

REPORT INFORMATION
  Report Type: 
  Country: None (occurrence: None)
  Receive Date: 20040409
  Receipt Date: 20040401
  Transmission Date: 20050107
  Serious: No
  Sender: FDA-Public Use
  Company Number: 2004AP02028

PATIENT
  Age: 61 Year
  Sex: Male

DRUGS (1)
  1. XYLOCAINE [Suspect]
     Indication: SPINAL ANAESTHESIA
     Dates: start: 20040302, end: 20040302

REACTIONS (5)
  - BLOOD PRESSURE SYSTOLIC DECREASED [None]
  - CHEST PAIN [None]
  - FEELING ABNORMAL [None]
  - PAIN [None]
  - SHOCK [None]
